FAERS Safety Report 4502909-7 (Version None)
Quarter: 2004Q4

REPORT INFORMATION
  Report Type: 
  Country: None (occurrence: None)
  Receive Date: 20041112
  Receipt Date: 20041103
  Transmission Date: 20050328
  Serious: Yes (Disabling)
  Sender: FDA-Public Use
  Company Number: 2004UW03389

PATIENT
  Age: 27 Year
  Sex: Male
  Weight: 93.441 kg

DRUGS (3)
  1. SEROQUEL [Suspect]
     Indication: ASPERGER'S DISORDER
     Dosage: 600 MG QD PO
     Route: 048
     Dates: start: 20020101
  2. LEXARO [Concomitant]
  3. ZYPREXA [Concomitant]

REACTIONS (8)
  - BLOOD CHOLESTEROL INCREASED [None]
  - BLOOD TRIGLYCERIDES INCREASED [None]
  - CATARACT [None]
  - FACE OEDEMA [None]
  - IMPAIRED HEALING [None]
  - OEDEMA PERIPHERAL [None]
  - RETINAL DETACHMENT [None]
  - WEIGHT INCREASED [None]
